FAERS Safety Report 4697650-4 (Version None)
Quarter: 2005Q2

REPORT INFORMATION
  Report Type: 
  Country: None (occurrence: None)
  Receive Date: 20050620
  Receipt Date: 20040716
  Transmission Date: 20051028
  Serious: Yes (Hospitalization, Other)
  Sender: FDA-Public Use
  Company Number: 200415428US

PATIENT
  Age: 58 Year
  Sex: Male

DRUGS (10)
  1. LANTUS [Suspect]
     Indication: DIABETES MELLITUS NON-INSULIN-DEPENDENT
     Dosage: 30 U QD
  2. REGULAR INSULIN [Concomitant]
  3. PHENYTOIN SODIUM [Concomitant]
  4. METOPROLOL TARTRATE (LOPRESSOR) [Concomitant]
  5. LASIX [Concomitant]
  6. PLAVIX [Concomitant]
  7. PANTOPRAZOLE SODIUM [Concomitant]
  8. COZAAR [Concomitant]
  9. LOPID [Concomitant]
  10. SIMVASTATIN [Concomitant]

REACTIONS (2)
  - HYPERGLYCAEMIA [None]
  - HYPOGLYCAEMIA [None]
